FAERS Safety Report 6299587-6 (Version None)
Quarter: 2009Q3

REPORT INFORMATION
  Report Type: 
  Country: None (occurrence: None)
  Receive Date: 20090806
  Receipt Date: 20090728
  Transmission Date: 20100115
  Serious: Yes (Other)
  Sender: FDA-Public Use
  Company Number: US-BAXTER-2009BH011509

PATIENT
  Age: 56 Year
  Sex: Male

DRUGS (3)
  1. EXTRANEAL [Suspect]
     Indication: PERITONEAL DIALYSIS
     Route: 033
     Dates: start: 20090623, end: 20090701
  2. GABAPENTIN [Concomitant]
     Indication: NEUROPATHY PERIPHERAL
     Route: 065
     Dates: end: 20090601
  3. DIANEAL [Concomitant]
     Indication: PERITONEAL DIALYSIS
     Route: 033
     Dates: start: 20071201

REACTIONS (4)
  - BLISTER [None]
  - DIZZINESS [None]
  - HYPOTENSION [None]
  - SKIN EXFOLIATION [None]
